FAERS Safety Report 5345123-8 (Version None)
Quarter: 2007Q2

REPORT INFORMATION
  Report Type: 
  Country: None (occurrence: None)
  Receive Date: 20070601
  Receipt Date: 20070522
  Transmission Date: 20071010
  Serious: Yes (Death, Other)
  Sender: FDA-Public Use
  Company Number: 163-21880-07051273

PATIENT

DRUGS (4)
  1. REVLIMID [Suspect]
     Indication: AMYLOIDOSIS
     Dosage: 25 MG, PER DAY FOR 21 DAYS OF A 28-DAY CYCLE, ORAL
     Route: 048
  2. DEXAMETHASONE TAB [Suspect]
     Indication: AMYLOIDOSIS
     Dosage: 10-20MG, DAYS 1-4, 9-12, 17-20, EVERY OTHER CYCLE,
  3. PROTON PUMP INHIBITORS (PROTON PUMP INHIBITORS) [Concomitant]
  4. ASPIRIN [Concomitant]

REACTIONS (23)
  - AMYLOIDOSIS [None]
  - ANAEMIA [None]
  - ARRHYTHMIA [None]
  - BONE MARROW FAILURE [None]
  - CARDIAC ARREST [None]
  - CEREBROVASCULAR ACCIDENT [None]
  - DEEP VEIN THROMBOSIS [None]
  - DEHYDRATION [None]
  - DIALYSIS [None]
  - DIARRHOEA [None]
  - DISEASE PROGRESSION [None]
  - DIZZINESS [None]
  - DRUG TOXICITY [None]
  - FATIGUE [None]
  - HEART TRANSPLANT REJECTION [None]
  - HYPOALBUMINAEMIA [None]
  - LEUKOPENIA [None]
  - MUSCLE SPASMS [None]
  - PERFORMANCE STATUS DECREASED [None]
  - RASH [None]
  - RENAL FAILURE CHRONIC [None]
  - RENAL IMPAIRMENT [None]
  - RESPIRATORY TRACT INFECTION [None]
